FAERS Safety Report 4940655-6 (Version None)
Quarter: 2006Q1

REPORT INFORMATION
  Report Type: 
  Country: None (occurrence: None)
  Receive Date: 20060207
  Receipt Date: 20050815
  Transmission Date: 20060701
  Serious: Yes (Hospitalization)
  Sender: FDA-Public Use
  Company Number: C2005-200-638

PATIENT
  Age: 67 Year
  Sex: Male
  Weight: 99 kg

DRUGS (2)
  1. CEFAZOLIN [Suspect]
     Indication: PREOPERATIVE CARE
     Dosage: 1G ONCE IV PUSH
     Route: 040
     Dates: start: 20050815
  2. CEFAZOLIN [Suspect]
     Indication: PROPHYLAXIS
     Dosage: 1G ONCE IV PUSH
     Route: 040
     Dates: start: 20050815

REACTIONS (1)
  - ANAPHYLACTOID REACTION [None]
